FAERS Safety Report 4446905-7 (Version None)
Quarter: 2004Q3

REPORT INFORMATION
  Report Type: 
  Country: None (occurrence: None)
  Receive Date: 20040908
  Receipt Date: 20040825
  Transmission Date: 20050211
  Serious: Yes (Death)
  Sender: FDA-Public Use
  Company Number: 2004-BP-07211BR

PATIENT
  Age: 76 Year
  Sex: Male

DRUGS (7)
  1. SPIRIVA [Suspect]
     Indication: CHRONIC OBSTRUCTIVE AIRWAYS DISEASE
     Dosage: (18 MCG) IH
     Route: 055
     Dates: start: 20040806, end: 20040813
  2. ANTIBIOTICS (ANTIBIOTICS) [Concomitant]
  3. NIMOTOP [Concomitant]
  4. EFFEXOR [Concomitant]
  5. BEROTEC (FENOTEROL HYDROBROMIDE) [Concomitant]
  6. ATROVENT [Concomitant]
  7. FLUIMICIL (ACETYLCYSTEINE) [Concomitant]

REACTIONS (1)
  - RESPIRATORY FAILURE [None]
